FAERS Safety Report 7474460-6 (Version None)
Quarter: 2011Q2

REPORT INFORMATION
  Report Type: 
  Country: None (occurrence: None)
  Receive Date: 20110512
  Receipt Date: 20110125
  Transmission Date: 20111010
  Serious: No
  Sender: FDA-Public Use
  Company Number: US-BAYER-2011-009090

PATIENT
  Age: 64 Year
  Sex: Female

DRUGS (4)
  1. AVELOX [Suspect]
     Indication: BRONCHITIS
     Dosage: 400 MG, QD
     Route: 048
     Dates: start: 20110125
  2. MUCINEX [Concomitant]
  3. TYLENOL (CAPLET) [Concomitant]
     Dosage: UNK
  4. ZANEX [Concomitant]

REACTIONS (1)
  - VOMITING [None]
